FAERS Safety Report 5191434-9 (Version None)
Quarter: 2006Q4

REPORT INFORMATION
  Report Type: 
  Country: None (occurrence: None)
  Receive Date: 20061219
  Receipt Date: 20061211
  Transmission Date: 20070319
  Serious: Yes (Other)
  Sender: FDA-Public Use
  Company Number: 2006151771

PATIENT
  Age: 46 Year
  Sex: Male

DRUGS (2)
  1. SUDAFED 12 HOUR [Suspect]
     Indication: NASOPHARYNGITIS
     Dosage: 8 TABLETS 4 TIMES DAILY, ORAL
     Route: 048
     Dates: start: 20061210
  2. SERTRALINE HYDROCHLORIDE                            (SERTRALINE HYDROC [Concomitant]

REACTIONS (1)
  - COLD SWEAT [None]
